FAERS Safety Report 8150813-8 (Version None)
Quarter: 2012Q1

REPORT INFORMATION
  Report Type: 
  Country: None (occurrence: None)
  Receive Date: 20120220
  Receipt Date: 20120214
  Transmission Date: 20120608
  Serious: Yes (Death, Hospitalization, Other)
  Sender: FDA-Public Use
  Company Number: US-PFIZER INC-2011303120

PATIENT
  Sex: Female
  Weight: 52.381 kg

DRUGS (20)
  1. NAPROXEN (ALEVE) [Concomitant]
     Dosage: UNK
  2. ALIMTA [Concomitant]
     Indication: LUNG NEOPLASM MALIGNANT
  3. ACETAMINOPHEN [Concomitant]
     Dosage: 325 MG, UNK
  4. VITAMIN B-12 [Concomitant]
     Dosage: UNK
     Route: 030
     Dates: start: 20110301
  5. PROCHLORPERAZINE MALEATE [Concomitant]
     Dosage: 10 MG, UNK
  6. XALKORI [Suspect]
     Indication: LUNG CARCINOMA CELL TYPE UNSPECIFIED STAGE IV
     Dosage: 250 MG, 2X/DAY
     Route: 048
     Dates: start: 20111101, end: 20110101
  7. LIDODERM [Concomitant]
     Dosage: 5 % FOR 12 HOURS EVERY 24 HOURS
  8. VICODIN [Concomitant]
     Indication: CONSTIPATION
     Dosage: 5-325 MG 1 TO 2 TABLETS EVERY BEDTIME
     Route: 048
  9. CLEOCIN T [Concomitant]
     Dosage: 1 %, 2X/DAY
  10. NEURONTIN [Concomitant]
     Dosage: 300 MG, UNK
  11. CALCIUM WITH VITAMIN D [Concomitant]
     Dosage: 1250 MG, UNK
  12. ZOFRAN [Concomitant]
  13. CIPROFLOXACIN [Concomitant]
     Dosage: 500 MG, 2X/DAY
  14. FOLIC ACID [Concomitant]
     Dosage: 1 MG, DAILY
  15. DECADRON [Concomitant]
     Dosage: 4 MG, PER 8 HOURS X2 DAYS FOLLOWED BY 4MG EVERY 12 HOURS
     Route: 048
  16. ZOMETA [Concomitant]
     Indication: METASTASES TO BONE
  17. LIDODERM [Concomitant]
     Indication: POST HERPETIC NEURALGIA
     Dosage: 5 %; 700 MG/PATCH
  18. VICODIN [Concomitant]
     Dosage: 5 MG-500 MG
  19. MULTI-VITAMINS [Concomitant]
     Dosage: UNK
     Route: 048
  20. ERBITUX [Concomitant]
     Indication: LUNG NEOPLASM MALIGNANT
     Dosage: UNK

REACTIONS (12)
  - CONFUSIONAL STATE [None]
  - AMNESIA [None]
  - MENTAL STATUS CHANGES [None]
  - DUODENAL ULCER [None]
  - COGNITIVE DISORDER [None]
  - DISEASE PROGRESSION [None]
  - LUNG CARCINOMA CELL TYPE UNSPECIFIED STAGE IV [None]
  - DEATH [None]
  - HALLUCINATION, VISUAL [None]
  - GASTRITIS [None]
  - OESOPHAGITIS ULCERATIVE [None]
  - VISION BLURRED [None]
